FAERS Safety Report 19826769 (Version 1)
Quarter: 2021Q3

REPORT INFORMATION
  Report Type: Spontaneous
  Country: US (occurrence: US)
  Receive Date: 20210913
  Receipt Date: 20210913
  Transmission Date: 20211014
  Serious: Yes (Hospitalization)
  Sender: FDA-Public Use
  Company Number: None

PATIENT
  Age: 66 Year
  Sex: Male
  Weight: 136 kg

DRUGS (2)
  1. ALBUTEROL/IPRATROPIUM (ALBUTEROL S04 3MG/IPRATROPIUM BR 0.5MG/3ML INHL [Suspect]
     Active Substance: ALBUTEROL\IPRATROPIUM
     Indication: COUGH
     Route: 055
     Dates: start: 20210720, end: 20210721
  2. METOPROLOL (METOPROLOL TARTRATE 25MG TAB) [Suspect]
     Active Substance: METOPROLOL TARTRATE
     Indication: ATRIAL FIBRILLATION
     Route: 048
     Dates: start: 20210719, end: 20210720

REACTIONS (10)
  - Cough [None]
  - Communication disorder [None]
  - Dizziness [None]
  - Syncope [None]
  - Tachycardia [None]
  - Bradycardia [None]
  - Fall [None]
  - Hypotension [None]
  - Asthenia [None]
  - Atrial fibrillation [None]

NARRATIVE: CASE EVENT DATE: 20210720
